FAERS Safety Report 9296000 (Version 1)
Quarter: 2013Q2

REPORT INFORMATION
  Report Type: Report from Study
  Country: ES (occurrence: ES)
  Receive Date: 20130517
  Receipt Date: 20130517
  Transmission Date: 20140414
  Serious: Yes (Other)
  Sender: FDA-Public Use
  Company Number: ES-JNJFOC-20130505661

PATIENT
  Age: 63 Year
  Sex: Male
  Weight: 109 kg

DRUGS (1)
  1. STELARA [Suspect]
     Indication: PSORIASIS
     Route: 058
     Dates: start: 20091210, end: 20130426

REACTIONS (1)
  - Viral pericarditis [Not Recovered/Not Resolved]
